FAERS Safety Report 5363308-1 (Version None)
Quarter: 2007Q2

REPORT INFORMATION
  Report Type: 
  Country: None (occurrence: None)
  Receive Date: 20070620
  Receipt Date: 20070614
  Transmission Date: 20071010
  Serious: Yes (Hospitalization, Other)
  Sender: FDA-Public Use
  Company Number: DE-JNJFOC-20070400551

PATIENT
  Sex: Female
  Weight: 27 kg

DRUGS (3)
  1. RISPERDAL [Suspect]
     Indication: LENNOX-GASTAUT SYNDROME
     Route: 048
  2. TOPAMAX [Suspect]
     Indication: DRUG USE FOR UNKNOWN INDICATION
     Dosage: 50-0-100
     Route: 048
  3. LAMOTRIGINE [Concomitant]
     Route: 048

REACTIONS (1)
  - THROMBOCYTOPENIA [None]
